FAERS Safety Report 6727620-3 (Version None)
Quarter: 2010Q2

REPORT INFORMATION
  Report Type: 
  Country: None (occurrence: None)
  Receive Date: 20100517
  Receipt Date: 20100517
  Transmission Date: 20101027
  Serious: No
  Sender: FDA-Public Use
  Company Number: None

PATIENT
  Age: 9 Year
  Sex: Female
  Weight: 30.391 kg

DRUGS (2)
  1. MOTRIN [Suspect]
     Indication: HEADACHE
     Dosage: 200MG ONCE DAILY AS NEED PO
     Route: 048
     Dates: start: 20090608, end: 20090625
  2. MOTRIN [Suspect]
     Indication: MYALGIA
     Dosage: 200MG ONCE DAILY AS NEED PO
     Route: 048
     Dates: start: 20090608, end: 20090625

REACTIONS (5)
  - DECREASED APPETITE [None]
  - DIARRHOEA HAEMORRHAGIC [None]
  - LETHARGY [None]
  - PRODUCT CONTAMINATION [None]
  - RECTAL TENESMUS [None]
